FAERS Safety Report 7091532-9 (Version None)
Quarter: 2010Q4

REPORT INFORMATION
  Report Type: 
  Country: None (occurrence: None)
  Receive Date: 20101109
  Receipt Date: 20101103
  Transmission Date: 20110411
  Serious: Yes (Other)
  Sender: FDA-Public Use
  Company Number: US-PFIZER INC-2010140332

PATIENT
  Sex: Male
  Weight: 95.238 kg

DRUGS (9)
  1. LYRICA [Suspect]
     Indication: NEUROPATHY PERIPHERAL
     Dosage: 75 MG, 2X/DAY
     Route: 048
     Dates: start: 20101001
  2. ARICEPT [Suspect]
     Indication: PARKINSON'S DISEASE
     Dosage: 5 MG, DAILY
     Route: 048
     Dates: start: 20101001
  3. ARICEPT [Suspect]
     Indication: DEMENTIA
  4. CARBIDOPA/MELEVODOPA HYDROCHLORIDE [Concomitant]
     Indication: PARKINSON'S DISEASE
     Dosage: 100MG
  5. AMANTADINE [Concomitant]
     Indication: PARKINSON'S DISEASE
     Dosage: 100 MG
  6. VYTORIN [Concomitant]
     Dosage: 10/40 MG
  7. LISINOPRIL [Concomitant]
     Dosage: 10MG
  8. DICLOFENAC [Concomitant]
     Dosage: 100 MG
  9. ASPIRIN [Concomitant]
     Dosage: UNK

REACTIONS (2)
  - FALL [None]
  - NEUROPATHY PERIPHERAL [None]
